FAERS Safety Report 9677117 (Version 2)
Quarter: 2014Q2

REPORT INFORMATION
  Report Type: Spontaneous
  Country: IT (occurrence: IT)
  Receive Date: 20131108
  Receipt Date: 20140625
  Transmission Date: 20141212
  Serious: Yes (Hospitalization)
  Sender: FDA-Public Use
  Company Number: IT-009507513-1311ITA001323

PATIENT
  Age: 29 Year
  Sex: Male

DRUGS (5)
  1. SINGULAIR 10 MG COMPRESSE RIVESTITE CON FILM [Suspect]
     Indication: ASTHMA
     Dosage: 10 MG, DAILY
     Route: 048
     Dates: start: 20120401, end: 20121031
  2. MOMETASONE FUROATE [Concomitant]
  3. SYMBICORT [Concomitant]
  4. BUDESONIDE [Concomitant]
  5. DEFLAN [Concomitant]

REACTIONS (1)
  - Allergic granulomatous angiitis [Recovering/Resolving]
